FAERS Safety Report 8841114 (Version 2)
Quarter: 2019Q3

REPORT INFORMATION
  Report Type: Spontaneous
  Country: DE (occurrence: DE)
  Receive Date: 20121015
  Receipt Date: 20190705
  Transmission Date: 20191005
  Serious: Yes (Other)
  Sender: FDA-Public Use
  Company Number: DE-MYLANLABS-2012S1020482

PATIENT
  Age: 30 Year
  Sex: Female
  Weight: 108 kg

DRUGS (4)
  1. KEPPRA [Suspect]
     Active Substance: LEVETIRACETAM
     Indication: EPILEPSY
     Dosage: 1500 MILLIGRAM, BID
     Route: 048
     Dates: start: 20100225, end: 20101029
  2. LAMOTRIGINE MYLAN [Suspect]
     Active Substance: LAMOTRIGINE
     Indication: EPILEPSY
     Dosage: 300 MILLIGRAM, BID
     Route: 048
     Dates: start: 20100225, end: 20101029
  3. NASIVIN                            /00070002/ [Concomitant]
     Indication: NASOPHARYNGITIS
     Dosage: UNK
     Route: 045
  4. CLOZAPINE. [Suspect]
     Active Substance: CLOZAPINE
     Indication: SCHIZOPHRENIA
     Dosage: 500 MILLIGRAM, QD
     Route: 048
     Dates: start: 20100225, end: 20101029

REACTIONS (5)
  - Polyhydramnios [Recovered/Resolved]
  - Foetal distress syndrome [Recovered/Resolved]
  - Maternal exposure during pregnancy [Recovered/Resolved]
  - Foetal growth restriction [Recovered/Resolved]
  - Premature delivery [Unknown]

NARRATIVE: CASE EVENT DATE: 20100225
